FAERS Safety Report 11944954 (Version 2)
Quarter: 2016Q1

REPORT INFORMATION
  Report Type: Spontaneous
  Country: JP (occurrence: JP)
  Receive Date: 20160125
  Receipt Date: 20160129
  Transmission Date: 20160526
  Serious: Yes (Death, Other)
  Sender: FDA-Public Use
  Company Number: JP-PFIZER INC-2016025322

PATIENT
  Age: 41 Year
  Sex: Female

DRUGS (2)
  1. INLYTA [Suspect]
     Active Substance: AXITINIB
     Dosage: 14 MG, DAILY
     Route: 048
     Dates: start: 2015, end: 201512
  2. INLYTA [Suspect]
     Active Substance: AXITINIB
     Dosage: 10 MG, DAILY
     Route: 048
     Dates: start: 201510, end: 201510

REACTIONS (2)
  - Subarachnoid haemorrhage [Fatal]
  - Hypertension [Unknown]

NARRATIVE: CASE EVENT DATE: 201512
